FAERS Safety Report 13085955 (Version 2)
Quarter: 2017Q1

REPORT INFORMATION
  Report Type: Report from Study
  Country: US (occurrence: US)
  Receive Date: 20170104
  Receipt Date: 20170113
  Transmission Date: 20170428
  Serious: Yes (Life-Threatening, Other)
  Sender: FDA-Public Use
  Company Number: US-PFIZER INC-2017002450

PATIENT

DRUGS (5)
  1. CARBOPLATIN. [Suspect]
     Active Substance: CARBOPLATIN
     Indication: NON-SMALL CELL LUNG CANCER
     Dosage: UNK UNK, CYCLIC (AUC = 6) DURING WEEKS 1 AND 5 OF XRT
  2. FOLIC ACID. [Concomitant]
     Active Substance: FOLIC ACID
     Dosage: 1000 UG, DAILY
  3. VITAMIN B12 [Concomitant]
     Active Substance: CYANOCOBALAMIN
     Dosage: 1000 UG, MONTHLY
  4. VITAMIN B12 [Concomitant]
     Active Substance: CYANOCOBALAMIN
     Dosage: 1000 UG
     Route: 058
  5. PEMETREXED [Suspect]
     Active Substance: PEMETREXED
     Indication: NON-SMALL CELL LUNG CANCER
     Dosage: 300 MG/M2, CYCLIC (DURING WEEKS 1, 3, 5, AND 7 OF XRT)

REACTIONS (5)
  - Febrile neutropenia [Unknown]
  - Sepsis [Unknown]
  - Multiple organ dysfunction syndrome [Unknown]
  - Liver function test increased [Unknown]
  - Thrombocytopenia [Unknown]
